FAERS Safety Report 10376157 (Version 1)
Quarter: 2014Q3

REPORT INFORMATION
  Report Type: Spontaneous
  Country: US (occurrence: US)
  Receive Date: 20140811
  Receipt Date: 20140811
  Transmission Date: 20150326
  Serious: No
  Sender: FDA-Public Use
  Company Number: US-ASTRAZENECA-2014SE22755

PATIENT
  Age: 70 Year
  Sex: Male
  Weight: 45.4 kg

DRUGS (5)
  1. MYCINS [Suspect]
     Active Substance: UNSPECIFIED INGREDIENT
     Route: 065
     Dates: start: 201012
  2. CALCIUM [Concomitant]
     Active Substance: CALCIUM
     Indication: BONE DISORDER
     Route: 048
  3. WOMENS ONE A DAY MULTIVITAMIN [Concomitant]
     Indication: BONE DISORDER
     Route: 048
  4. ANASTRAZOLE [Suspect]
     Active Substance: ANASTROZOLE
     Indication: BREAST CANCER
     Route: 048
     Dates: start: 201010
  5. VITAMIN D3 [Concomitant]
     Active Substance: CHOLECALCIFEROL
     Indication: BONE DISORDER
     Route: 048

REACTIONS (26)
  - High density lipoprotein decreased [Not Recovered/Not Resolved]
  - Urine odour abnormal [Not Recovered/Not Resolved]
  - Hair colour changes [Unknown]
  - Diarrhoea [Not Recovered/Not Resolved]
  - Blood cholesterol increased [Not Recovered/Not Resolved]
  - Skin ulcer [Recovered/Resolved]
  - Urticaria [Not Recovered/Not Resolved]
  - Dyspepsia [Not Recovered/Not Resolved]
  - Blood glucose increased [Not Recovered/Not Resolved]
  - Abdominal pain [Not Recovered/Not Resolved]
  - Constipation [Not Recovered/Not Resolved]
  - Back pain [Not Recovered/Not Resolved]
  - Alopecia [Unknown]
  - Nausea [Not Recovered/Not Resolved]
  - Fatigue [Not Recovered/Not Resolved]
  - Bone density decreased [Not Recovered/Not Resolved]
  - Abdominal discomfort [Not Recovered/Not Resolved]
  - Arthralgia [Not Recovered/Not Resolved]
  - Glucose tolerance impaired [Unknown]
  - Myalgia [Not Recovered/Not Resolved]
  - Drug hypersensitivity [Recovered/Resolved]
  - Memory impairment [Not Recovered/Not Resolved]
  - Flatulence [Not Recovered/Not Resolved]
  - Abdominal distension [Not Recovered/Not Resolved]
  - Pain [Unknown]
  - Asthenia [Not Recovered/Not Resolved]

NARRATIVE: CASE EVENT DATE: 201011
